FAERS Safety Report 19932308 (Version 1)
Quarter: 2021Q4

REPORT INFORMATION
  Report Type: Report from Study
  Country: CO (occurrence: CO)
  Receive Date: 20211008
  Receipt Date: 20211008
  Transmission Date: 20220303
  Serious: Yes (Other)
  Sender: FDA-Public Use
  Company Number: CO-NOVARTISPH-PHHY2018CO153901

PATIENT
  Sex: Female
  Weight: 81 kg

DRUGS (1)
  1. ELTROMBOPAG OLAMINE [Suspect]
     Active Substance: ELTROMBOPAG OLAMINE
     Indication: Immune thrombocytopenia
     Dosage: 75 MG, QD
     Route: 048

REACTIONS (5)
  - Poisoning [Unknown]
  - Fungal infection [Unknown]
  - Urticaria [Unknown]
  - Pruritus [Unknown]
  - Ephelides [Unknown]
